FAERS Safety Report 12095808 (Version 3)
Quarter: 2017Q1

REPORT INFORMATION
  Report Type: Spontaneous
  Country: JP (occurrence: JP)
  Receive Date: 20160220
  Receipt Date: 20170119
  Transmission Date: 20170428
  Serious: Yes (Hospitalization)
  Sender: FDA-Public Use
  Company Number: JP-AMGEN-JPNSP2016021166

PATIENT
  Age: 7 Decade
  Sex: Female
  Weight: 61 kg

DRUGS (9)
  1. 5-FU                               /00098801/ [Concomitant]
     Active Substance: FLUOROURACIL
     Dosage: 3120 MG, UNK
     Route: 041
     Dates: start: 20151014
  2. LEVOFOLINATE [Concomitant]
     Active Substance: LEVOLEUCOVORIN CALCIUM
     Indication: COLON CANCER RECURRENT
     Dosage: 260 MG, 1X/2WEEKS
     Route: 041
     Dates: start: 20151014
  3. AVASTIN [Suspect]
     Active Substance: BEVACIZUMAB
     Indication: COLON CANCER RECURRENT
     Dosage: 240 MG, 1X/2WEEKS
     Route: 041
     Dates: start: 20151014, end: 20160104
  4. LEUCOVORIN                         /00566701/ [Concomitant]
     Active Substance: LEUCOVORIN
     Dosage: UNK
     Route: 041
  5. GRANISETRON [Concomitant]
     Active Substance: GRANISETRON
     Indication: CHEMOTHERAPY
     Dosage: 3 MG, 1X/2WEEKS
     Route: 041
     Dates: start: 20151014
  6. CAMPTO [Concomitant]
     Active Substance: IRINOTECAN
     Indication: COLON CANCER RECURRENT
     Dosage: 190 MG, 1X/2WEEKS
     Route: 041
     Dates: start: 20151014
  7. DEXART [Concomitant]
     Active Substance: DEXAMETHASONE SODIUM PHOSPHATE
     Indication: CHEMOTHERAPY
     Dosage: 6.6 MG, 1X/2WEEKS
     Route: 041
     Dates: start: 20151014
  8. 5-FU                               /00098801/ [Concomitant]
     Active Substance: FLUOROURACIL
     Indication: COLON CANCER RECURRENT
     Dosage: 520 MG,  1X/2WEEKS
     Route: 041
     Dates: start: 20151014
  9. G-LASTA [Suspect]
     Active Substance: PEGFILGRASTIM
     Indication: NEUTROPHIL COUNT DECREASED
     Dosage: 3.6 MG, 1X/2WEEKS
     Route: 058
     Dates: start: 20151204

REACTIONS (1)
  - Pulmonary alveolar haemorrhage [Recovered/Resolved]

NARRATIVE: CASE EVENT DATE: 20160118
